FAERS Safety Report 21354314 (Version 5)
Quarter: 2022Q4

REPORT INFORMATION
  Report Type: Report from Study
  Country: US (occurrence: US)
  Receive Date: 20220920
  Receipt Date: 20221111
  Transmission Date: 20230113
  Serious: Yes (Hospitalization, Other)
  Sender: FDA-Public Use
  Company Number: US-BRISTOL-MYERS SQUIBB COMPANY-2022-108127

PATIENT
  Age: 65 Year
  Sex: Male

DRUGS (3)
  1. NIVOLUMAB [Suspect]
     Active Substance: NIVOLUMAB
     Indication: Glioblastoma
     Route: 065
     Dates: start: 20220310
  2. NIVOLUMAB [Suspect]
     Active Substance: NIVOLUMAB
     Route: 065
     Dates: start: 20220517, end: 20220906
  3. BEVACIZUMAB [Suspect]
     Active Substance: BEVACIZUMAB
     Indication: Glioblastoma
     Route: 065
     Dates: start: 20220310, end: 20220630

REACTIONS (3)
  - Abdominal infection [Recovered/Resolved]
  - Enterocolonic fistula [Unknown]
  - Pernicious anaemia [Recovered/Resolved]

NARRATIVE: CASE EVENT DATE: 20220914
